FAERS Safety Report 20507663 (Version 2)
Quarter: 2022Q1

REPORT INFORMATION
  Report Type: Spontaneous
  Country: US (occurrence: US)
  Receive Date: 20220223
  Receipt Date: 20220225
  Transmission Date: 20220423
  Serious: No
  Sender: FDA-Public Use
  Company Number: US-NOVARTISTESTPH-NVSC2022US041149

PATIENT
  Age: 65 Year
  Sex: Female

DRUGS (2)
  1. XIIDRA [Suspect]
     Active Substance: LIFITEGRAST
     Indication: Product used for unknown indication
     Dosage: 5 %, BID
     Route: 047
     Dates: start: 20211228, end: 20220215
  2. XIIDRA [Suspect]
     Active Substance: LIFITEGRAST
     Dosage: 5 %, BID (1 DROP PER EYE TWICE A DAY)
     Route: 047
     Dates: start: 20211228, end: 20220115

REACTIONS (5)
  - Sinusitis [Unknown]
  - Pain [Unknown]
  - Dysgeusia [Unknown]
  - Discomfort [Unknown]
  - Anosmia [Unknown]
